FAERS Safety Report 5977408-6 (Version None)
Quarter: 2008Q4

REPORT INFORMATION
  Report Type: 
  Country: None (occurrence: None)
  Receive Date: 20081203
  Receipt Date: 20081125
  Transmission Date: 20090506
  Serious: Yes (Other)
  Sender: FDA-Public Use
  Company Number: US-BAYER-200812781BCC

PATIENT
  Age: 68 Year
  Sex: Male
  Weight: 91 kg

DRUGS (9)
  1. ASPIRIN [Suspect]
     Indication: ANTICOAGULANT THERAPY
     Dosage: TOTAL DAILY DOSE: 81 MG  UNIT DOSE: 81 MG
     Route: 048
     Dates: start: 20071101
  2. PLAVIX [Suspect]
     Indication: CEREBROVASCULAR ACCIDENT
     Route: 048
     Dates: start: 20080101
  3. LISINOPRIL [Concomitant]
     Route: 048
  4. METFORMIN HCL [Concomitant]
     Route: 048
  5. GLIPIZIDE [Concomitant]
     Route: 048
  6. FENOFIBRATE [Concomitant]
     Route: 048
  7. ATORVASTATIN CALCIUM [Concomitant]
     Route: 048
  8. FOLIC ACID [Concomitant]
     Route: 048
  9. PANTOPRAZOLE SODIUM [Concomitant]
     Route: 065

REACTIONS (4)
  - ANAEMIA [None]
  - CONTUSION [None]
  - HAEMATOCHEZIA [None]
  - HAEMORRHAGE SUBCUTANEOUS [None]
